FAERS Safety Report 8381233-9 (Version None)
Quarter: 2012Q2

REPORT INFORMATION
  Report Type: 
  Country: None (occurrence: None)
  Receive Date: 20120523
  Receipt Date: 20120517
  Transmission Date: 20120825
  Serious: Yes (Other)
  Sender: FDA-Public Use
  Company Number: US-PFIZER INC-2012085387

PATIENT
  Sex: Female
  Weight: 62.132 kg

DRUGS (11)
  1. DETROL LA [Suspect]
     Indication: BLADDER DISORDER
  2. METFORMIN [Concomitant]
     Indication: DIABETES MELLITUS
     Dosage: 500 MG, UNK
  3. VITAMIN D [Concomitant]
     Dosage: UNK
  4. ZETIA [Concomitant]
     Indication: BLOOD TRIGLYCERIDES ABNORMAL
     Dosage: 10 MG, DAILY
  5. TRICOR [Concomitant]
     Indication: BLOOD TRIGLYCERIDES ABNORMAL
     Dosage: 145 MG, DAILY
  6. DETROL LA [Suspect]
     Indication: CYSTITIS
     Dosage: 4 MG, 1X/DAY
     Route: 048
     Dates: start: 20120401, end: 20120501
  7. GLYBURIDE [Concomitant]
     Indication: DIABETES MELLITUS
     Dosage: FOUR TABLETS, 2X/DAY
  8. METFORMIN HCL [Concomitant]
     Indication: DIABETES MELLITUS
     Dosage: 500 MG, DAILY
  9. VITAMIN B COMPLEX CAP [Concomitant]
     Indication: VITAMIN SUPPLEMENTATION
     Dosage: 1000 IU, 4X/DAY
  10. ATACAND [Concomitant]
     Indication: HYPERTENSION
     Dosage: 16 MG, DAILY
  11. ATACAND [Concomitant]
     Dosage: 16 MG, UNK

REACTIONS (5)
  - DRY MOUTH [None]
  - BLOOD GLUCOSE INCREASED [None]
  - ABDOMINAL PAIN UPPER [None]
  - DYSGEUSIA [None]
  - VISION BLURRED [None]
